FAERS Safety Report 9294157 (Version 1)
Quarter: 2013Q2

REPORT INFORMATION
  Report Type: Spontaneous
  Country: US (occurrence: US)
  Receive Date: 20130516
  Receipt Date: 20130516
  Transmission Date: 20140414
  Serious: No
  Sender: FDA-Public Use
  Company Number: US-ASTRAZENECA-2013SE30601

PATIENT
  Sex: Female

DRUGS (6)
  1. OMEPRAZOLE [Suspect]
     Route: 048
  2. OMEPRAZOLE [Suspect]
     Route: 048
  3. BLOOD PRESSURE MEDICATION [Concomitant]
  4. FOSAMAX (GENERIC) [Concomitant]
  5. ACIPHEX [Concomitant]
  6. PREVACID [Concomitant]

REACTIONS (5)
  - Dysphagia [Unknown]
  - Impaired work ability [Unknown]
  - Dyspepsia [Unknown]
  - Malaise [Unknown]
  - Drug ineffective [Unknown]
